FAERS Safety Report 9782454 (Version 3)
Quarter: 2014Q1

REPORT INFORMATION
  Report Type: Report from Study
  Country: DE (occurrence: DE)
  Receive Date: 20131226
  Receipt Date: 20140207
  Transmission Date: 20141002
  Serious: Yes (Hospitalization)
  Sender: FDA-Public Use
  Company Number: DE-JNJFOC-20131205384

PATIENT
  Age: 48 Year
  Sex: Male

DRUGS (15)
  1. SIMPONI [Suspect]
     Indication: RHEUMATOID ARTHRITIS
     Route: 058
     Dates: start: 201211, end: 201301
  2. RITUXIMAB [Suspect]
     Indication: RHEUMATOID ARTHRITIS
     Route: 065
     Dates: start: 20130416
  3. RITUXIMAB [Suspect]
     Indication: RHEUMATOID ARTHRITIS
     Route: 065
     Dates: start: 20101019
  4. RITUXIMAB [Suspect]
     Indication: RHEUMATOID ARTHRITIS
     Route: 065
     Dates: start: 20090622
  5. RITUXIMAB [Suspect]
     Indication: RHEUMATOID ARTHRITIS
     Route: 065
     Dates: start: 20080415
  6. LEFLUNOMID [Suspect]
     Indication: RHEUMATOID ARTHRITIS
     Route: 065
     Dates: start: 201112
  7. IVIG [Suspect]
     Indication: RHEUMATOID ARTHRITIS
     Dosage: 2 G / KG BODY WEIGHT FOR 5 DAYS.
     Route: 042
  8. PREDNISOLON [Concomitant]
     Route: 065
  9. HCT [Concomitant]
     Route: 065
  10. RAMIPRIL [Concomitant]
     Route: 065
  11. FOLIC ACID [Concomitant]
     Route: 065
  12. ALFUZOSIN [Concomitant]
     Route: 065
  13. METHOTREXAT [Concomitant]
     Route: 065
     Dates: start: 201103
  14. METHOTREXAT [Concomitant]
     Route: 065
     Dates: start: 200706, end: 201103
  15. CELEBREX [Concomitant]
     Route: 065

REACTIONS (5)
  - Myositis [Recovered/Resolved]
  - Pulmonary embolism [Recovered/Resolved]
  - Deep vein thrombosis [Unknown]
  - Pneumonia [Recovered/Resolved]
  - Drug ineffective [Unknown]
